FAERS Safety Report 5634560-X (Version None)
Quarter: 2008Q1

REPORT INFORMATION
  Report Type: 
  Country: None (occurrence: None)
  Receive Date: 20080222
  Receipt Date: 20080220
  Transmission Date: 20080703
  Serious: Yes (Other)
  Sender: FDA-Public Use
  Company Number: PHNU2007DE02928

PATIENT
  Sex: Male

DRUGS (2)
  1. PROLEUKIN [Suspect]
     Indication: RENAL CELL CARCINOMA
     Route: 065
     Dates: start: 20070801
  2. CHEMOTHERAPEUTICS NOS [Concomitant]
     Route: 065

REACTIONS (2)
  - SKIN HYPERTROPHY [None]
  - SYSTEMIC SCLEROSIS [None]
